FAERS Safety Report 4505631-6 (Version None)
Quarter: 2004Q4

REPORT INFORMATION
  Report Type: 
  Country: None (occurrence: None)
  Receive Date: 20041018
  Receipt Date: 20040701
  Transmission Date: 20050328
  Serious: No
  Sender: FDA-Public Use
  Company Number: 207564

PATIENT
  Age: 65 Year
  Sex: Male
  Weight: 83.4 kg

DRUGS (7)
  1. XOLAIR [Suspect]
     Indication: ASTHMA
     Dosage: 375 MG, Q2W, SUBCUTANEOUS
     Route: 058
     Dates: start: 20040315
  2. FOSAMAX [Concomitant]
  3. ADVAIR DISKUS (SALMETEROL XINAFOATE, FLUTICASONE PROPIONATE) [Concomitant]
  4. SINGULAIR [Concomitant]
  5. CELEBREX [Concomitant]
  6. ALLEGRA [Concomitant]
  7. ASPIRIN [Concomitant]

REACTIONS (2)
  - GOUT [None]
  - RHEUMATOID ARTHRITIS [None]
